FAERS Safety Report 19982797 (Version 3)
Quarter: 2022Q2

REPORT INFORMATION
  Report Type: Report from Study
  Country: ES (occurrence: ES)
  Receive Date: 20211021
  Receipt Date: 20220629
  Transmission Date: 20220721
  Serious: Yes (Other)
  Sender: FDA-Public Use
  Company Number: ES-TAKEDA-2021TUS064910

PATIENT
  Age: 44 Year
  Sex: Female

DRUGS (11)
  1. TEDUGLUTIDE [Suspect]
     Active Substance: TEDUGLUTIDE
     Indication: Short-bowel syndrome
     Dosage: 2.4 MILLIGRAM, QD
     Route: 042
     Dates: start: 20201105
  2. TEDUGLUTIDE [Suspect]
     Active Substance: TEDUGLUTIDE
     Indication: Short-bowel syndrome
     Dosage: 2.4 MILLIGRAM, QD
     Route: 042
     Dates: start: 20201105
  3. TEDUGLUTIDE [Suspect]
     Active Substance: TEDUGLUTIDE
     Indication: Short-bowel syndrome
     Dosage: 2.4 MILLIGRAM, QD
     Route: 042
     Dates: start: 20201105
  4. TEDUGLUTIDE [Suspect]
     Active Substance: TEDUGLUTIDE
     Indication: Short-bowel syndrome
     Dosage: 2.4 MILLIGRAM, QD
     Route: 042
     Dates: start: 20201105
  5. DUOFEMME [Concomitant]
     Indication: Premenstrual syndrome
     Dosage: 1 DOSAGE FORM, QD
     Route: 048
     Dates: start: 20200801
  6. CEFUROXIME [Concomitant]
     Active Substance: CEFUROXIME
     Indication: Cystitis
     Dosage: 500 MILLIGRAM, QD
     Route: 048
     Dates: start: 20201006, end: 20201016
  7. DEXKETOPROFEN TROMETAMOL [Concomitant]
     Active Substance: DEXKETOPROFEN TROMETAMOL
     Indication: Nephritis
     Dosage: 25 MILLIGRAM, TID
     Route: 048
     Dates: start: 20201002
  8. DEXKETOPROFEN TROMETAMOL [Concomitant]
     Active Substance: DEXKETOPROFEN TROMETAMOL
     Indication: Pain
  9. ACETAMINOPHEN [Concomitant]
     Active Substance: ACETAMINOPHEN
     Indication: Nephritis
     Dosage: 1 GRAM, TID
     Route: 048
     Dates: start: 20201002
  10. MICALDEOS [Concomitant]
     Dosage: 1 DOSAGE FORM, QD
     Route: 048
     Dates: start: 20211213
  11. PRISTIQ EXTENDED-RELEASE [Concomitant]
     Active Substance: DESVENLAFAXINE SUCCINATE
     Indication: Depressive symptom
     Dosage: 1 DOSAGE FORM, QD
     Route: 048
     Dates: start: 20211207

REACTIONS (1)
  - Implant site abscess [Recovered/Resolved]

NARRATIVE: CASE EVENT DATE: 20211011
